FAERS Safety Report 21636428 (Version 4)
Quarter: 2024Q1

REPORT INFORMATION
  Report Type: Report from Study
  Country: US (occurrence: US)
  Receive Date: 20221124
  Receipt Date: 20240327
  Transmission Date: 20240410
  Serious: Yes (Other)
  Sender: FDA-Public Use
  Company Number: US-ABBVIE-4211531

PATIENT
  Sex: Female
  Weight: 104.32 kg

DRUGS (4)
  1. IMBRUVICA [Suspect]
     Active Substance: IBRUTINIB
     Indication: Chronic lymphocytic leukaemia
     Route: 048
     Dates: start: 20200301, end: 20220904
  2. IMBRUVICA [Suspect]
     Active Substance: IBRUTINIB
     Indication: Chronic lymphocytic leukaemia
     Route: 048
  3. GABAPENTIN [Suspect]
     Active Substance: GABAPENTIN
     Indication: Cerebral artery embolism
     Route: 065
  4. MELATONIN [Suspect]
     Active Substance: MELATONIN
     Indication: Cerebral artery embolism
     Route: 065

REACTIONS (6)
  - Renal cancer [Recovered/Resolved]
  - Nausea [Unknown]
  - Cerebral artery embolism [Recovered/Resolved]
  - Drug hypersensitivity [Recovered/Resolved]
  - Tumour compression [Unknown]
  - Cerebral haemorrhage [Recovered/Resolved]

NARRATIVE: CASE EVENT DATE: 20220101
